FAERS Safety Report 14369718 (Version 1)
Quarter: 2018Q1

REPORT INFORMATION
  Report Type: Spontaneous
  Country: FR (occurrence: FR)
  Receive Date: 20180110
  Receipt Date: 20180110
  Transmission Date: 20180509
  Serious: Yes (Other)
  Sender: FDA-Public Use
  Company Number: FR-ROCHE-2051978

PATIENT
  Age: 31 Year
  Sex: Male

DRUGS (3)
  1. LOXAPAC [Suspect]
     Active Substance: LOXAPINE
     Indication: MANIA
     Route: 048
     Dates: start: 20170726
  2. CARBAMAZEPINE. [Suspect]
     Active Substance: CARBAMAZEPINE
     Indication: MANIA
     Route: 048
     Dates: start: 20170726, end: 20170809
  3. RIVOTRIL [Suspect]
     Active Substance: CLONAZEPAM
     Indication: MANIA
     Dosage: 2.5 MG/ML, 20 DROPS
     Route: 048
     Dates: start: 2017

REACTIONS (4)
  - Gamma-glutamyltransferase increased [Unknown]
  - Accidental overdose [Unknown]
  - Transaminases increased [Unknown]
  - Liver injury [Unknown]

NARRATIVE: CASE EVENT DATE: 20170809
